FAERS Safety Report 15322425 (Version 1)
Quarter: 2018Q3

REPORT INFORMATION
  Report Type: Spontaneous
  Country: US (occurrence: US)
  Receive Date: 20180827
  Receipt Date: 20180827
  Transmission Date: 20181010
  Serious: No
  Sender: FDA-Public Use
  Company Number: US-TEVA-2018-US-947627

PATIENT
  Age: 41 Year
  Sex: Female

DRUGS (3)
  1. CLONAZEPAM. [Suspect]
     Active Substance: CLONAZEPAM
     Indication: ANXIETY
     Dates: start: 20180812
  2. CLONAZEPAM. [Suspect]
     Active Substance: CLONAZEPAM
     Indication: GASTROOESOPHAGEAL REFLUX DISEASE
  3. CLONAZEPAM. [Suspect]
     Active Substance: CLONAZEPAM
     Indication: SLEEP DISORDER

REACTIONS (2)
  - Flatulence [Unknown]
  - Gastrointestinal sounds abnormal [Unknown]

NARRATIVE: CASE EVENT DATE: 20180812
